FAERS Safety Report 7720719-4 (Version None)
Quarter: 2011Q3

REPORT INFORMATION
  Report Type: 
  Country: None (occurrence: None)
  Receive Date: 20110831
  Receipt Date: 20110819
  Transmission Date: 20111222
  Serious: Yes (Death)
  Sender: FDA-Public Use
  Company Number: DE-TYCO HEALTHCARE/MALLINCKRODT-T201101625

PATIENT
  Age: 82 Year
  Sex: Female
  Weight: 74 kg

DRUGS (6)
  1. LYRICA [Suspect]
     Indication: NEURALGIA
     Dosage: 50 MG, QD
     Route: 048
     Dates: start: 20110218, end: 20110218
  2. FENTANYL [Concomitant]
     Dosage: 12.5 UG/HR, UNK
     Route: 062
  3. MARCUMAR [Concomitant]
     Dosage: UNK
  4. EXALGO [Suspect]
     Indication: BACK PAIN
     Dosage: 4 MG, QD
     Route: 048
     Dates: start: 20110218
  5. LYRICA [Suspect]
     Dosage: 100 MG QD
     Route: 048
     Dates: start: 20110219
  6. UNSPECIFIED LOW MOLECULAR WEIGHT HEPARIN [Concomitant]

REACTIONS (3)
  - CARDIAC DEATH [None]
  - CARDIAC ARREST [None]
  - ATRIAL FIBRILLATION [None]
